FAERS Safety Report 12665422 (Version 1)
Quarter: 2016Q3

REPORT INFORMATION
  Report Type: Report from Study
  Country: BR (occurrence: BR)
  Receive Date: 20160818
  Receipt Date: 20160818
  Transmission Date: 20161109
  Serious: Yes (Hospitalization)
  Sender: FDA-Public Use
  Company Number: PHHY2016BR112367

PATIENT
  Sex: Female
  Weight: 80 kg

DRUGS (2)
  1. FORASEQ [Suspect]
     Active Substance: BUDESONIDE\FORMOTEROL FUMARATE
     Indication: BRONCHITIS
     Dosage: (BUDESONIDE 400 MCG, FORMOTEROL FUMARATE 12 MCG) (STOPPED WITH THE USE OF 3 YEARS)
     Route: 065
  2. FORASEQ [Suspect]
     Active Substance: BUDESONIDE\FORMOTEROL FUMARATE
     Dosage: 2 DF, QD (BUDESONIDE 400 MCG, FORMOTEROL FUMARATE 12 MCG)
     Route: 055

REACTIONS (3)
  - Product use issue [Unknown]
  - Bronchitis [Unknown]
  - Mouth injury [Unknown]
